FAERS Safety Report 9851715 (Version 3)
Quarter: 2014Q2

REPORT INFORMATION
  Report Type: Report from Study
  Country: BR (occurrence: BR)
  Receive Date: 20140129
  Receipt Date: 20140421
  Transmission Date: 20141212
  Serious: Yes (Hospitalization, Disabling)
  Sender: FDA-Public Use
  Company Number: BR-ROCHE-1067728

PATIENT
  Age: 54 Year
  Sex: Female
  Weight: 76 kg

DRUGS (8)
  1. MABTHERA [Suspect]
     Indication: RHEUMATOID ARTHRITIS
     Dosage: LATEST INFUSION ON 27/JAN/2014
     Route: 042
     Dates: start: 20110415
  2. ATENOLOL [Concomitant]
     Indication: PRODUCT USED FOR UNKNOWN INDICATION
     Route: 065
  3. LOSARTAN [Concomitant]
     Indication: PRODUCT USED FOR UNKNOWN INDICATION
     Route: 065
  4. PURAN T4 [Concomitant]
  5. PREDNISONE [Concomitant]
  6. ANADROL [Concomitant]
  7. LOVASTATIN [Concomitant]
  8. SIMVASTATIN [Concomitant]

REACTIONS (3)
  - Arthropathy [Recovering/Resolving]
  - Inguinal hernia [Recovered/Resolved]
  - Osteoporosis [Unknown]
